FAERS Safety Report 23536061 (Version 2)
Quarter: 2024Q1

REPORT INFORMATION
  Report Type: Spontaneous
  Country: JP (occurrence: JP)
  Receive Date: 20240219
  Receipt Date: 20240219
  Transmission Date: 20240409
  Serious: Yes (Hospitalization)
  Sender: FDA-Public Use
  Company Number: JP-HEXAL-SDZ2023JP062226AA

PATIENT
  Sex: Female
  Weight: 56.8 kg

DRUGS (10)
  1. ACYCLOVIR [Suspect]
     Active Substance: ACYCLOVIR
     Indication: Product used for unknown indication
     Dosage: 200 MG, QD
     Route: 048
  2. ESOMEPRAZOLE [Suspect]
     Active Substance: ESOMEPRAZOLE
     Indication: Product used for unknown indication
     Dosage: 20 MG, QD
     Route: 048
  3. IBRUTINIB [Suspect]
     Active Substance: IBRUTINIB
     Indication: Mass
     Dosage: 420 MG, QD
     Route: 048
  4. LEVOFLOXACIN [Suspect]
     Active Substance: LEVOFLOXACIN
     Indication: Cystitis
     Dosage: UNK
     Route: 048
  5. RITUXAN [Suspect]
     Active Substance: RITUXIMAB
     Indication: Chronic lymphocytic leukaemia
     Dosage: UNK, 6 COURSES OF RITUXIMAB-FLUDARABINE (R-FLU) TREATMENT
     Route: 065
  6. RITUXAN [Suspect]
     Active Substance: RITUXIMAB
     Indication: Lymphoplasmacytoid lymphoma/immunocytoma
     Dosage: UNK, FOUR COURSES OF R-FLU AND 2 COURSES OF RITUXIMAB ALONE WERE ADMINISTERED
     Route: 065
  7. SULFAMETHOXAZOLE\TRIMETHOPRIM [Suspect]
     Active Substance: SULFAMETHOXAZOLE\TRIMETHOPRIM
     Indication: Product used for unknown indication
     Dosage: 1 DF, QD
     Route: 048
  8. VIBEGRON [Suspect]
     Active Substance: VIBEGRON
     Indication: Product used for unknown indication
     Dosage: UNK, FROM 11 DAYS EARLIER
     Route: 048
  9. FLUDARABINE PHOSPHATE [Concomitant]
     Active Substance: FLUDARABINE PHOSPHATE
     Indication: Chronic lymphocytic leukaemia
     Dosage: UNK, 6 COURSES OF RITUXIMAB-FLUDARABINE (R-FLU) TREATMENT
     Route: 065
  10. FLUDARABINE PHOSPHATE [Concomitant]
     Active Substance: FLUDARABINE PHOSPHATE
     Indication: Lymphoplasmacytoid lymphoma/immunocytoma
     Dosage: UNK, FOUR COURSES OF R-FLU AND 2 COURSES OF RITUXIMAB ALONE WERE ADMINISTERED
     Route: 065

REACTIONS (3)
  - Hyponatraemia [Unknown]
  - Blood creatine phosphokinase increased [Unknown]
  - Off label use [Unknown]
